FAERS Safety Report 9516716 (Version 3)
Quarter: 2013Q4

REPORT INFORMATION
  Report Type: Spontaneous
  Country: HU (occurrence: HU)
  Receive Date: 20130911
  Receipt Date: 20131112
  Transmission Date: 20140711
  Serious: Yes (Hospitalization, Other)
  Sender: FDA-Public Use
  Company Number: HU-ELI_LILLY_AND_COMPANY-HU201309000460

PATIENT
  Age: 72 Year
  Sex: Male

DRUGS (5)
  1. HUMATROPE [Suspect]
     Indication: GROWTH HORMONE DEFICIENCY
     Dosage: 0.3 MG, QD
     Dates: start: 20090429
  2. HUMATROPE [Suspect]
     Dosage: 0.5 MG, QD
     Route: 058
     Dates: start: 20100409, end: 20130826
  3. AMLODIPIN                          /00972401/ [Concomitant]
     Dosage: 5 MG, UNKNOWN
  4. ASTRIX [Concomitant]
     Dosage: 100 MG, UNKNOWN
  5. ANTACID [Concomitant]
     Dosage: 20 MG, UNKNOWN

REACTIONS (5)
  - Red blood cell sedimentation rate increased [Not Recovered/Not Resolved]
  - Anaemia [Not Recovered/Not Resolved]
  - Intracardiac mass [Unknown]
  - Diverticulum [Unknown]
  - Blood disorder [Unknown]
